FAERS Safety Report 13714590 (Version 4)
Quarter: 2019Q1

REPORT INFORMATION
  Report Type: Report from Study
  Country: GB (occurrence: GB)
  Receive Date: 20170704
  Receipt Date: 20190222
  Transmission Date: 20190417
  Serious: Yes (Hospitalization)
  Sender: FDA-Public Use
  Company Number: GB-ASTRAZENECA-2017SE68761

PATIENT
  Age: 22987 Day
  Sex: Male

DRUGS (34)
  1. MEDI4736 [Suspect]
     Active Substance: DURVALUMAB
     Indication: BLADDER TRANSITIONAL CELL CARCINOMA
     Dosage: 1.5G ONCE/SINGLE ADMINISTRATION
     Route: 042
     Dates: start: 20170804, end: 20170804
  2. MEDI4736 [Suspect]
     Active Substance: DURVALUMAB
     Indication: BLADDER TRANSITIONAL CELL CARCINOMA
     Dosage: 1.5G ONCE/SINGLE ADMINISTRATION
     Route: 042
     Dates: start: 20171006, end: 20171006
  3. ATORVASTATIN [Concomitant]
     Active Substance: ATORVASTATIN
     Indication: HYPERCHOLESTEROLAEMIA
     Route: 048
  4. TRANEXAMIC ACID. [Concomitant]
     Active Substance: TRANEXAMIC ACID
     Indication: THROMBOSIS
     Route: 048
     Dates: start: 20170119
  5. ZOMORPH [Concomitant]
     Active Substance: MORPHINE SULFATE
     Indication: PAIN IN EXTREMITY
     Route: 048
     Dates: start: 20170609, end: 20170909
  6. MEDI4736 [Suspect]
     Active Substance: DURVALUMAB
     Indication: BLADDER TRANSITIONAL CELL CARCINOMA
     Dosage: 1.5G ONCE/SINGLE ADMINISTRATION
     Route: 042
     Dates: start: 20160923, end: 20160923
  7. MEDI4736 [Suspect]
     Active Substance: DURVALUMAB
     Indication: BLADDER TRANSITIONAL CELL CARCINOMA
     Dosage: 1.5G ONCE/SINGLE ADMINISTRATION
     Route: 042
     Dates: start: 20161230, end: 20161230
  8. MEDI4736 [Suspect]
     Active Substance: DURVALUMAB
     Indication: BLADDER TRANSITIONAL CELL CARCINOMA
     Dosage: 1.5G ONCE/SINGLE ADMINISTRATION
     Route: 042
     Dates: start: 20180803, end: 20180803
  9. MEDI4736 [Suspect]
     Active Substance: DURVALUMAB
     Indication: BLADDER TRANSITIONAL CELL CARCINOMA
     Dosage: 1.5G ONCE/SINGLE ADMINISTRATION
     Route: 042
     Dates: start: 20170421, end: 20170421
  10. MEDI4736 [Suspect]
     Active Substance: DURVALUMAB
     Indication: BLADDER TRANSITIONAL CELL CARCINOMA
     Dosage: 1.5G ONCE/SINGLE ADMINISTRATION
     Route: 042
     Dates: start: 20170615, end: 20170615
  11. MEDI4736 [Suspect]
     Active Substance: DURVALUMAB
     Indication: BLADDER TRANSITIONAL CELL CARCINOMA
     Dosage: 1.5G ONCE/SINGLE ADMINISTRATION
     Route: 042
     Dates: start: 20180209, end: 20180209
  12. IBUPROFEN. [Concomitant]
     Active Substance: IBUPROFEN
     Indication: PAIN IN EXTREMITY
     Route: 048
     Dates: start: 20170608, end: 20170701
  13. ASPIRIN. [Concomitant]
     Active Substance: ASPIRIN
     Indication: CARDIOVASCULAR EVENT PROPHYLAXIS
     Route: 048
     Dates: start: 201705, end: 20180416
  14. MEDI4736 [Suspect]
     Active Substance: DURVALUMAB
     Indication: BLADDER TRANSITIONAL CELL CARCINOMA
     Dosage: 1.5G ONCE/SINGLE ADMINISTRATION
     Route: 042
     Dates: start: 20160822, end: 20160822
  15. MEDI4736 [Suspect]
     Active Substance: DURVALUMAB
     Indication: BLADDER TRANSITIONAL CELL CARCINOMA
     Dosage: 1.5G ONCE/SINGLE ADMINISTRATION
     Route: 042
     Dates: start: 20161202, end: 20161202
  16. MEDI4736 [Suspect]
     Active Substance: DURVALUMAB
     Indication: BLADDER TRANSITIONAL CELL CARCINOMA
     Dosage: 1.5G ONCE/SINGLE ADMINISTRATION
     Route: 042
     Dates: start: 20171215, end: 20171215
  17. MEDI4736 [Suspect]
     Active Substance: DURVALUMAB
     Indication: BLADDER TRANSITIONAL CELL CARCINOMA
     Dosage: 1.5G ONCE/SINGLE ADMINISTRATION
     Route: 042
     Dates: start: 20161104, end: 20161104
  18. MEDI4736 [Suspect]
     Active Substance: DURVALUMAB
     Indication: BLADDER TRANSITIONAL CELL CARCINOMA
     Dosage: 1.5G ONCE/SINGLE ADMINISTRATION
     Route: 042
     Dates: start: 20170127, end: 20170127
  19. MEDI4736 [Suspect]
     Active Substance: DURVALUMAB
     Indication: BLADDER TRANSITIONAL CELL CARCINOMA
     Dosage: 1.5G ONCE/SINGLE ADMINISTRATION
     Route: 042
     Dates: start: 20170324, end: 20170324
  20. MEDI4736 [Suspect]
     Active Substance: DURVALUMAB
     Indication: BLADDER TRANSITIONAL CELL CARCINOMA
     Dosage: 1.5G ONCE/SINGLE ADMINISTRATION
     Route: 042
     Dates: start: 20180112, end: 20180112
  21. MEDI4736 [Suspect]
     Active Substance: DURVALUMAB
     Indication: BLADDER TRANSITIONAL CELL CARCINOMA
     Dosage: 1.5G ONCE/SINGLE ADMINISTRATION
     Route: 042
     Dates: start: 20180511, end: 20180511
  22. LAXIDO [Concomitant]
     Active Substance: POLYETHYLENE GLYCOL 3350\POTASSIUM CHLORIDE\SODIUM BICARBONATE\SODIUM CHLORIDE
     Indication: CONSTIPATION
     Dosage: 1 SACHET AS REQUIRED
     Route: 048
     Dates: start: 20170510, end: 20170701
  23. MEDI4736 [Suspect]
     Active Substance: DURVALUMAB
     Indication: BLADDER TRANSITIONAL CELL CARCINOMA
     Dosage: 1.5G ONCE/SINGLE ADMINISTRATION
     Route: 042
     Dates: start: 20160729, end: 20160729
  24. MEDI4736 [Suspect]
     Active Substance: DURVALUMAB
     Indication: BLADDER TRANSITIONAL CELL CARCINOMA
     Dosage: 1.5G ONCE/SINGLE ADMINISTRATION
     Route: 042
     Dates: start: 20170908, end: 20170908
  25. MEDI4736 [Suspect]
     Active Substance: DURVALUMAB
     Indication: BLADDER TRANSITIONAL CELL CARCINOMA
     Dosage: 1.5G ONCE/SINGLE ADMINISTRATION
     Route: 042
     Dates: start: 20180316, end: 20180316
  26. MEDI4736 [Suspect]
     Active Substance: DURVALUMAB
     Indication: BLADDER TRANSITIONAL CELL CARCINOMA
     Dosage: 1.5G ONCE/SINGLE ADMINISTRATION
     Route: 042
     Dates: start: 20180406, end: 20180406
  27. MEDI4736 [Suspect]
     Active Substance: DURVALUMAB
     Indication: BLADDER TRANSITIONAL CELL CARCINOMA
     Dosage: 1.5G ONCE/SINGLE ADMINISTRATION
     Route: 042
     Dates: start: 20190125, end: 20190125
  28. MEDI4736 [Suspect]
     Active Substance: DURVALUMAB
     Indication: BLADDER TRANSITIONAL CELL CARCINOMA
     Dosage: 1.5G ONCE/SINGLE ADMINISTRATION
     Route: 042
     Dates: start: 20170224, end: 20170224
  29. MEDI4736 [Suspect]
     Active Substance: DURVALUMAB
     Indication: BLADDER TRANSITIONAL CELL CARCINOMA
     Dosage: 1.5G ONCE/SINGLE ADMINISTRATION
     Route: 042
     Dates: start: 20181102, end: 20181102
  30. MEDI4736 [Suspect]
     Active Substance: DURVALUMAB
     Indication: BLADDER TRANSITIONAL CELL CARCINOMA
     Dosage: 1.5G ONCE/SINGLE ADMINISTRATION
     Route: 042
     Dates: start: 20170519, end: 20170519
  31. MEDI4736 [Suspect]
     Active Substance: DURVALUMAB
     Indication: BLADDER TRANSITIONAL CELL CARCINOMA
     Dosage: 1.5G ONCE/SINGLE ADMINISTRATION
     Route: 042
     Dates: start: 20171114, end: 20171114
  32. MEDI4736 [Suspect]
     Active Substance: DURVALUMAB
     Indication: BLADDER TRANSITIONAL CELL CARCINOMA
     Dosage: 1.5G ONCE/SINGLE ADMINISTRATION
     Route: 042
     Dates: start: 20180608, end: 20180608
  33. MEDI4736 [Suspect]
     Active Substance: DURVALUMAB
     Indication: BLADDER TRANSITIONAL CELL CARCINOMA
     Dosage: 1.5G ONCE/SINGLE ADMINISTRATION
     Route: 042
     Dates: start: 20180831, end: 20180831
  34. LAXIDO [Concomitant]
     Active Substance: POLYETHYLENE GLYCOL 3350\POTASSIUM CHLORIDE\SODIUM BICARBONATE\SODIUM CHLORIDE
     Indication: CONSTIPATION
     Dosage: 1 SACHET AS REQUIRED
     Route: 048
     Dates: start: 20170119, end: 20170701

REACTIONS (1)
  - Diverticulitis [Recovered/Resolved]

NARRATIVE: CASE EVENT DATE: 20170701
